FAERS Safety Report 24790509 (Version 1)
Quarter: 2024Q4

REPORT INFORMATION
  Report Type: Spontaneous
  Country: US (occurrence: US)
  Receive Date: 20241230
  Receipt Date: 20241230
  Transmission Date: 20250115
  Serious: Yes (Hospitalization, Other)
  Sender: BRISTOL-MYERS SQUIBB COMPANY
  Company Number: US-BRISTOL-MYERS SQUIBB COMPANY-2024-200021

PATIENT
  Age: 71 Year
  Sex: Male
  Weight: 68.04 kg

DRUGS (7)
  1. REVLIMID [Suspect]
     Active Substance: LENALIDOMIDE
     Indication: Myelodysplastic syndrome
     Dosage: #1 DAILY X 21 DAYS
     Route: 048
     Dates: start: 20241101
  2. ROPINIROLE HYDROCHLORIDE [Concomitant]
     Active Substance: ROPINIROLE HYDROCHLORIDE
  3. OXYBUTYNIN CHLORIDE [Concomitant]
     Active Substance: OXYBUTYNIN CHLORIDE
  4. VITAMINS [Concomitant]
     Active Substance: VITAMINS
  5. VITAMIN B12 [Concomitant]
     Active Substance: CYANOCOBALAMIN
  6. OMEPRAZOLE [Concomitant]
     Active Substance: OMEPRAZOLE
     Dosage: CPDR
  7. ASPIRIN [Concomitant]
     Active Substance: ASPIRIN

REACTIONS (2)
  - Deep vein thrombosis [Unknown]
  - Off label use [Unknown]
